FAERS Safety Report 7054027-4 (Version None)
Quarter: 2010Q4

REPORT INFORMATION
  Report Type: 
  Country: None (occurrence: None)
  Receive Date: 20101020
  Receipt Date: 20101012
  Transmission Date: 20110411
  Serious: Yes (Hospitalization)
  Sender: FDA-Public Use
  Company Number: US-ROXANE LABORATORIES, INC.-2010-RO-01345RO

PATIENT
  Age: 28 Year
  Sex: Male

DRUGS (11)
  1. FUROSEMIDE [Suspect]
     Indication: CARDIAC FAILURE
     Dosage: 40 MG
  2. FUROSEMIDE [Suspect]
  3. DIGOXIN [Suspect]
     Indication: CARDIAC FAILURE
  4. ENALAPRIL MALEATE [Suspect]
     Indication: CARDIAC FAILURE
  5. METOPROLOL SUCCINATE [Suspect]
     Indication: CARDIAC FAILURE
  6. SPIRONOLACTONE [Suspect]
     Indication: CARDIAC FAILURE
  7. LINCOMYCIN [Suspect]
     Indication: EVIDENCE BASED TREATMENT
     Route: 030
  8. AMOXICILLIN [Suspect]
     Indication: EVIDENCE BASED TREATMENT
     Route: 048
  9. ACETAMINOPHEN [Suspect]
  10. DIPHENHYDRAMINE HCL [Suspect]
     Indication: STEVENS-JOHNSON SYNDROME
  11. SILVER SULFADIAZINE [Suspect]
     Indication: STEVENS-JOHNSON SYNDROME
     Route: 061

REACTIONS (5)
  - ACINETOBACTER BACTERAEMIA [None]
  - CONDITION AGGRAVATED [None]
  - RENAL FAILURE ACUTE [None]
  - STEVENS-JOHNSON SYNDROME [None]
  - THROMBOSIS [None]
